FAERS Safety Report 21206854 (Version 1)
Quarter: 2022Q3

REPORT INFORMATION
  Report Type: Spontaneous
  Country: US (occurrence: None)
  Receive Date: 20220811
  Receipt Date: 20220811
  Transmission Date: 20221026
  Serious: No
  Sender: FDA-Public Use
  Company Number: None

PATIENT
  Age: 50 Year
  Sex: Female
  Weight: 121.5 kg

DRUGS (1)
  1. SCOPOLAMINE [Suspect]
     Active Substance: SCOPOLAMINE
     Indication: Nausea
     Dosage: OTHER QUANTITY : 1 PATCH(ES);?
     Route: 062
     Dates: start: 20220728, end: 20220728

REACTIONS (3)
  - Vision blurred [None]
  - Eye pain [None]
  - Insomnia [None]

NARRATIVE: CASE EVENT DATE: 20220728
